FAERS Safety Report 5118962-6 (Version None)
Quarter: 2006Q3

REPORT INFORMATION
  Report Type: 
  Country: None (occurrence: None)
  Receive Date: 20060926
  Receipt Date: 20060914
  Transmission Date: 20061208
  Serious: Yes (Other)
  Sender: FDA-Public Use
  Company Number: HQWYE708118AUG06

PATIENT
  Age: 82 Year
  Sex: Male

DRUGS (1)
  1. BENEFIX [Suspect]
     Indication: FACTOR IX DEFICIENCY
     Dosage: FIRST TIME DOSE
     Dates: start: 20060101, end: 20060101

REACTIONS (1)
  - ANGINA PECTORIS [None]
